FAERS Safety Report 20139759 (Version 1)
Quarter: 2021Q4

REPORT INFORMATION
  Report Type: Spontaneous
  Country: CN (occurrence: CN)
  Receive Date: 20211202
  Receipt Date: 20211202
  Transmission Date: 20220303
  Serious: Yes (Hospitalization)
  Sender: FDA-Public Use
  Company Number: CN-PFIZER INC-202101630248

PATIENT
  Age: 15 Month
  Sex: Male
  Weight: 10.5 kg

DRUGS (9)
  1. SOLU-MEDROL [Suspect]
     Active Substance: METHYLPREDNISOLONE SODIUM SUCCINATE
     Indication: Peripheral swelling
     Dosage: 20 MG, 1X/DAY
     Route: 041
     Dates: start: 20191101, end: 20191101
  2. UNASYN [Suspect]
     Active Substance: AMPICILLIN SODIUM\SULBACTAM SODIUM
     Indication: Peripheral swelling
     Dosage: 0.750 G, 2X/DAY
     Route: 041
     Dates: start: 20191101, end: 20191102
  3. CEFTRIAXONE SODIUM [Suspect]
     Active Substance: CEFTRIAXONE SODIUM
     Indication: Pneumonia
     Dosage: 0.8 G, 1X/DAY
     Route: 041
     Dates: start: 20191028, end: 20191101
  4. AMBROXOL HYDROCHLORIDE [Suspect]
     Active Substance: AMBROXOL HYDROCHLORIDE
     Indication: Pneumonia
     Dosage: 10.000 MG, 1X/DAY
     Route: 041
     Dates: start: 20191028, end: 20191101
  5. SODIUM CHLORIDE [Concomitant]
     Active Substance: SODIUM CHLORIDE
     Indication: Vehicle solution use
     Dosage: 50 ML, 2X/DAY
     Route: 041
     Dates: start: 20191101, end: 20191102
  6. ZITHROMAX [Concomitant]
     Active Substance: AZITHROMYCIN DIHYDRATE
     Indication: Pneumonia
     Dosage: 0.100 G, 1X/DAY
     Route: 041
     Dates: start: 20191101, end: 20191103
  7. MUPIROCIN [Concomitant]
     Active Substance: MUPIROCIN
     Indication: Peripheral swelling
     Dosage: 1.000 G, 3X/DAY
     Route: 061
     Dates: start: 20191101, end: 20191103
  8. DEXTROSE [Concomitant]
     Active Substance: DEXTROSE
     Indication: Vehicle solution use
     Dosage: 50 ML, 1X/DAY
     Route: 041
     Dates: start: 20191028, end: 20191101
  9. DEXTROSE [Concomitant]
     Active Substance: DEXTROSE
     Dosage: 100 ML, 1X/DAY
     Route: 041
     Dates: start: 20191101, end: 20191103

REACTIONS (4)
  - Drug hypersensitivity [Recovering/Resolving]
  - Rash [Recovering/Resolving]
  - Macule [Recovering/Resolving]
  - Pyrexia [Recovering/Resolving]

NARRATIVE: CASE EVENT DATE: 20191101
